FAERS Safety Report 17410047 (Version 1)
Quarter: 2020Q1

REPORT INFORMATION
  Report Type: Spontaneous
  Country: NZ (occurrence: NZ)
  Receive Date: 20200212
  Receipt Date: 20200212
  Transmission Date: 20200409
  Serious: Yes (Other)
  Sender: FDA-Public Use
  Company Number: NZ-MYLANLABS-2020M1010780

PATIENT
  Sex: Female

DRUGS (1)
  1. LOGEM [Suspect]
     Active Substance: LAMOTRIGINE
     Indication: BIPOLAR DISORDER
     Dosage: UNK

REACTIONS (2)
  - Suicidal ideation [Recovering/Resolving]
  - Product substitution issue [Unknown]
